FAERS Safety Report 5464686-5 (Version None)
Quarter: 2007Q3

REPORT INFORMATION
  Report Type: 
  Country: None (occurrence: None)
  Receive Date: 20070921
  Receipt Date: 20070917
  Transmission Date: 20080115
  Serious: Yes (Hospitalization, Other)
  Sender: FDA-Public Use
  Company Number: US-PFIZER INC-2006147513

PATIENT
  Sex: Male
  Weight: 97.5 kg

DRUGS (7)
  1. BEXTRA [Suspect]
     Indication: ARTHRITIS
  2. VIOXX [Suspect]
     Indication: ARTHRITIS
     Route: 048
     Dates: start: 19991001
  3. HYDROCODONE BITARTRATE [Concomitant]
     Dates: start: 19990107, end: 20060901
  4. NITROQUICK [Concomitant]
     Dates: start: 19991016, end: 20050428
  5. ASPIRIN [Concomitant]
     Dates: start: 19990101
  6. LIPITOR [Concomitant]
  7. PLAVIX [Concomitant]
     Dates: start: 19991016

REACTIONS (2)
  - CARDIOVASCULAR DISORDER [None]
  - MYOCARDIAL INFARCTION [None]
